FAERS Safety Report 15346715 (Version 1)
Quarter: 2018Q3

REPORT INFORMATION
  Report Type: Spontaneous
  Country: JP (occurrence: JP)
  Receive Date: 20180904
  Receipt Date: 20180904
  Transmission Date: 20181010
  Serious: Yes (Other)
  Sender: FDA-Public Use
  Company Number: JP-ASTELLAS-2018US038899

PATIENT
  Age: 71 Year
  Sex: Male

DRUGS (4)
  1. GLYCERIN                           /00200601/ [Concomitant]
     Active Substance: GLYCERIN
     Indication: PRODUCT USED FOR UNKNOWN INDICATION
     Dosage: UNK UNK, UNKNOWN FREQ.
     Route: 041
  2. DEXAMETHASONE. [Concomitant]
     Active Substance: DEXAMETHASONE
     Indication: PRODUCT USED FOR UNKNOWN INDICATION
     Dosage: UNK, UNKNOWN FREQ.
     Route: 041
  3. ERLOTINIB [Suspect]
     Active Substance: ERLOTINIB
     Indication: METASTASES TO MENINGES
  4. ERLOTINIB [Suspect]
     Active Substance: ERLOTINIB
     Indication: LUNG ADENOCARCINOMA
     Dosage: UNK, UNKNOWN FREQ.
     Route: 050

REACTIONS (4)
  - Pneumatosis intestinalis [Recovered/Resolved]
  - Pneumomediastinum [Recovered/Resolved]
  - Diarrhoea [Recovered/Resolved]
  - Pneumoretroperitoneum [Recovered/Resolved]
